FAERS Safety Report 4317629-1 (Version None)
Quarter: 2004Q1

REPORT INFORMATION
  Report Type: 
  Country: None (occurrence: None)
  Receive Date: 20040315
  Receipt Date: 20040305
  Transmission Date: 20041129
  Serious: Yes (Hospitalization)
  Sender: FDA-Public Use
  Company Number: US-BRISTOL-MYERS SQUIBB COMPANY-12526190

PATIENT
  Age: 7 Year
  Sex: Male
  Weight: 21 kg

DRUGS (1)
  1. COUMADIN [Suspect]
     Indication: MITRAL VALVE REPLACEMENT
     Route: 048

REACTIONS (6)
  - ANAEMIA [None]
  - ARTHRALGIA [None]
  - INTERNATIONAL NORMALISED RATIO INCREASED [None]
  - PULMONARY OEDEMA [None]
  - PYREXIA [None]
  - RASH [None]
